FAERS Safety Report 7496497-3 (Version None)
Quarter: 2011Q2

REPORT INFORMATION
  Report Type: 
  Country: None (occurrence: None)
  Receive Date: 20110523
  Receipt Date: 20110517
  Transmission Date: 20111010
  Serious: Yes (Death, Other)
  Sender: FDA-Public Use
  Company Number: JP-SANOFI-AVENTIS-2011SA030588

PATIENT

DRUGS (3)
  1. PACLITAXEL [Suspect]
     Dosage: ON DAY 1
     Route: 065
  2. TAXOTERE [Suspect]
     Dosage: ON DAY 1
     Route: 065
  3. GEMCITABINE HYDROCHLORIDE [Suspect]
     Dosage: 1000-800 MG/M2 ON DAY 1, 8 AND 15, EVERY 52 DAYS
     Route: 065

REACTIONS (4)
  - NEUROPATHY PERIPHERAL [None]
  - MYOCARDIAL INFARCTION [None]
  - PLATELET COUNT DECREASED [None]
  - WHITE BLOOD CELL COUNT DECREASED [None]
